FAERS Safety Report 8320847-9 (Version None)
Quarter: 2012Q2

REPORT INFORMATION
  Report Type: 
  Country: None (occurrence: None)
  Receive Date: 20120430
  Receipt Date: 20120421
  Transmission Date: 20120825
  Serious: Yes (Hospitalization)
  Sender: FDA-Public Use
  Company Number: PHHY2012MX034876

PATIENT
  Sex: Male

DRUGS (2)
  1. BISOPROLOL FUMARATE [Concomitant]
     Indication: HYPERTENSION
     Dosage: 1 TABLET DAILY
  2. DIOVAN [Suspect]
     Indication: HYPERTENSION
     Dosage: 1 TABLET DAILY
     Dates: start: 20120410, end: 20120413

REACTIONS (4)
  - ARTERITIS [None]
  - FATIGUE [None]
  - MALAISE [None]
  - ANGINA UNSTABLE [None]
